FAERS Safety Report 5003892-0 (Version None)
Quarter: 2006Q2

REPORT INFORMATION
  Report Type: 
  Country: None (occurrence: None)
  Receive Date: 20060515
  Receipt Date: 20060504
  Transmission Date: 20061013
  Serious: Yes (Other)
  Sender: FDA-Public Use
  Company Number: 13971

PATIENT
  Age: 21 Year
  Sex: Female

DRUGS (1)
  1. ARA-C [Suspect]
     Indication: ACUTE MYELOID LEUKAEMIA RECURRENT
     Dosage: 2 G/M2 BID

REACTIONS (10)
  - ANXIETY [None]
  - BEDRIDDEN [None]
  - CONVERSION DISORDER [None]
  - CONVULSION [None]
  - DEPRESSED MOOD [None]
  - FEAR [None]
  - INSOMNIA [None]
  - IRRITABILITY [None]
  - PNEUMONIA [None]
  - WHITE BLOOD CELL COUNT DECREASED [None]
